FAERS Safety Report 6598684-5 (Version None)
Quarter: 2010Q1

REPORT INFORMATION
  Report Type: 
  Country: None (occurrence: None)
  Receive Date: 20100224
  Receipt Date: 20100212
  Transmission Date: 20100710
  Serious: Yes (Disabling)
  Sender: FDA-Public Use
  Company Number: PT-PFIZER INC-2010019208

PATIENT
  Age: 62 Year
  Sex: Male

DRUGS (2)
  1. SUTENT [Suspect]
     Indication: RENAL CANCER
     Dosage: 50 MG, 1X/DAY
     Route: 048
     Dates: start: 20090401
  2. NIMESULIDE [Concomitant]
     Dosage: UNK
     Route: 048

REACTIONS (3)
  - PAIN [None]
  - PARAESTHESIA [None]
  - SKIN EXFOLIATION [None]
